FAERS Safety Report 24395587 (Version 1)
Quarter: 2024Q4

REPORT INFORMATION
  Report Type: Spontaneous
  Country: US (occurrence: US)
  Receive Date: 20241004
  Receipt Date: 20241004
  Transmission Date: 20250114
  Serious: No
  Sender: AJANTA PHARMA
  Company Number: US-AJANTA-2024AJA00127

PATIENT

DRUGS (2)
  1. CHOLESTYRAMINE [Suspect]
     Active Substance: CHOLESTYRAMINE
     Indication: Product used for unknown indication
     Dosage: ORANGE FLAVOR
     Route: 048
     Dates: start: 20240427, end: 2024
  2. CHOLESTYRAMINE [Suspect]
     Active Substance: CHOLESTYRAMINE
     Dosage: ORANGE FLAVOR
     Route: 048
     Dates: start: 20240627

REACTIONS (3)
  - Oral discomfort [Unknown]
  - Product solubility abnormal [Unknown]
  - Product substitution issue [Unknown]

NARRATIVE: CASE EVENT DATE: 20240101
